FAERS Safety Report 5974303-3 (Version None)
Quarter: 2008Q4

REPORT INFORMATION
  Report Type: 
  Country: None (occurrence: None)
  Receive Date: 20081201
  Receipt Date: 20070321
  Transmission Date: 20090506
  Serious: Yes (Other)
  Sender: FDA-Public Use
  Company Number: US-PFIZER INC-2007023068

PATIENT
  Sex: Female
  Weight: 52.2 kg

DRUGS (8)
  1. CHANTIX [Suspect]
     Indication: EX-TOBACCO USER
     Route: 048
     Dates: start: 20070214
  2. LISINOPRIL [Concomitant]
     Route: 048
  3. LISINOPRIL [Concomitant]
     Route: 048
  4. CARTIA XT [Concomitant]
     Route: 048
  5. NEXIUM [Concomitant]
     Route: 048
  6. SPIRIVA [Concomitant]
  7. ADVAIR HFA [Concomitant]
  8. VITAMINS [Concomitant]
     Route: 048

REACTIONS (7)
  - ABNORMAL DREAMS [None]
  - AGEUSIA [None]
  - ANOREXIA [None]
  - DYSPNOEA [None]
  - NAUSEA [None]
  - TREMOR [None]
  - WEIGHT DECREASED [None]
